FAERS Safety Report 23310742 (Version 2)
Quarter: 2023Q4

REPORT INFORMATION
  Report Type: Report from Study
  Country: US (occurrence: US)
  Receive Date: 20231218
  Receipt Date: 20231220
  Transmission Date: 20240109
  Serious: Yes (Hospitalization, Other)
  Sender: FDA-Public Use
  Company Number: US-ABBVIE-5547169

PATIENT
  Sex: Female

DRUGS (3)
  1. RINVOQ [Suspect]
     Active Substance: UPADACITINIB
     Indication: Psoriasis
     Dosage: FORM STRENGTH WAS 15 MILLIGRAMS?END DATE IN 2023
     Route: 048
     Dates: start: 20230824
  2. RINVOQ [Suspect]
     Active Substance: UPADACITINIB
     Indication: Psoriasis
     Dosage: FORM STRENGTH WAS 15 MILLIGRAMS?START DATE IN 2023
     Route: 048
  3. OCALIVA [Concomitant]
     Active Substance: OBETICHOLIC ACID
     Indication: Product used for unknown indication

REACTIONS (6)
  - Spinal fusion surgery [Unknown]
  - Fall [Unknown]
  - Psoriasis [Unknown]
  - Incision site swelling [Not Recovered/Not Resolved]
  - Muscle spasms [Not Recovered/Not Resolved]
  - Procedural pain [Not Recovered/Not Resolved]

NARRATIVE: CASE EVENT DATE: 20230101
